FAERS Safety Report 7078359-9 (Version None)
Quarter: 2010Q4

REPORT INFORMATION
  Report Type: 
  Country: None (occurrence: None)
  Receive Date: 20101102
  Receipt Date: 20101022
  Transmission Date: 20110411
  Serious: Yes (Hospitalization, Other)
  Sender: FDA-Public Use
  Company Number: US-BAYER-201038418NA

PATIENT
  Sex: Female

DRUGS (3)
  1. BETASERON [Suspect]
     Dosage: TOTAL DAILY DOSE: 3 MG
     Route: 058
  2. LEXAPRO [Interacting]
  3. EFFEXOR XR [Interacting]

REACTIONS (8)
  - BRADYCARDIA [None]
  - DEHYDRATION [None]
  - EJECTION FRACTION DECREASED [None]
  - HALLUCINATION [None]
  - HYPERHIDROSIS [None]
  - HYPOTENSION [None]
  - MIGRAINE [None]
  - SEROTONIN SYNDROME [None]
